FAERS Safety Report 5825912-3 (Version None)
Quarter: 2008Q3

REPORT INFORMATION
  Report Type: 
  Country: None (occurrence: None)
  Receive Date: 20080729
  Receipt Date: 20080716
  Transmission Date: 20090109
  Serious: Yes (Hospitalization)
  Sender: FDA-Public Use
  Company Number: PHHO2008IT05063

PATIENT
  Sex: Male
  Weight: 75 kg

DRUGS (4)
  1. TASIGNA [Suspect]
     Indication: CHRONIC MYELOID LEUKAEMIA
     Dosage: 800MG DAILY
     Route: 048
     Dates: start: 20070503, end: 20080416
  2. ALLOPURINOL [Concomitant]
  3. LASIX [Concomitant]
     Indication: FLUID RETENTION
  4. LIMPIDEX [Concomitant]

REACTIONS (6)
  - CORONARY ANGIOPLASTY [None]
  - CORONARY ARTERY DISEASE [None]
  - CORONARY ARTERY STENOSIS [None]
  - EJECTION FRACTION [None]
  - MYOCARDIAL ISCHAEMIA [None]
  - STENT PLACEMENT [None]
